FAERS Safety Report 22010698 (Version 1)
Quarter: 2023Q1

REPORT INFORMATION
  Report Type: Spontaneous
  Country: US (occurrence: US)
  Receive Date: 20230220
  Receipt Date: 20230220
  Transmission Date: 20230417
  Serious: Yes (Death, Life-Threatening, Hospitalization)
  Sender: FDA-Public Use
  Company Number: US-MYLANLABS-2023M1016697

PATIENT
  Age: 65 Year
  Sex: Female

DRUGS (12)
  1. DEXAMETHASONE [Suspect]
     Active Substance: DEXAMETHASONE
     Indication: COVID-19
     Dosage: UNK
     Route: 065
  2. HEPARIN [Suspect]
     Active Substance: HEPARIN SODIUM
     Indication: Embolism
     Dosage: UNK, INFUSION
     Route: 042
  3. FLUCONAZOLE [Suspect]
     Active Substance: FLUCONAZOLE
     Indication: Cryptococcosis
     Dosage: UNK
     Route: 065
  4. FLUCONAZOLE [Suspect]
     Active Substance: FLUCONAZOLE
     Indication: Fungal endocarditis
  5. MICAFUNGIN [Suspect]
     Active Substance: MICAFUNGIN
     Indication: Cryptococcosis
     Dosage: UNK
     Route: 065
  6. MICAFUNGIN [Suspect]
     Active Substance: MICAFUNGIN
     Indication: Fungal endocarditis
  7. FLUCYTOSINE [Suspect]
     Active Substance: FLUCYTOSINE
     Indication: Cryptococcosis
     Dosage: UNK
     Route: 065
  8. FLUCYTOSINE [Suspect]
     Active Substance: FLUCYTOSINE
     Indication: Fungal endocarditis
  9. AMPHOTERICIN B [Suspect]
     Active Substance: AMPHOTERICIN B
     Indication: Cryptococcosis
     Dosage: UNK
     Route: 065
  10. AMPHOTERICIN B [Suspect]
     Active Substance: AMPHOTERICIN B
     Indication: Fungal endocarditis
  11. REMDESIVIR [Concomitant]
     Active Substance: REMDESIVIR
     Indication: COVID-19
     Dosage: UNK
     Route: 065
  12. AZTREONAM [Concomitant]
     Active Substance: AZTREONAM
     Indication: COVID-19
     Dosage: UNK
     Route: 065

REACTIONS (18)
  - Respiratory failure [Fatal]
  - Haemodynamic instability [Fatal]
  - Drug ineffective [Unknown]
  - Septic shock [Unknown]
  - Cardiogenic shock [Unknown]
  - Cryptococcosis [Unknown]
  - Fungal endocarditis [Unknown]
  - Meningitis [Unknown]
  - Cardiac valve vegetation [Unknown]
  - Sepsis [Unknown]
  - Pulmonary infarction [Unknown]
  - Cerebral infarction [Unknown]
  - Cardiac failure acute [Unknown]
  - Hypervolaemia [Unknown]
  - Embolism [Unknown]
  - Cerebral artery embolism [Unknown]
  - Heparin-induced thrombocytopenia [Unknown]
  - Off label use [Unknown]
